FAERS Safety Report 25901534 (Version 1)
Quarter: 2025Q4

REPORT INFORMATION
  Report Type: Spontaneous
  Country: AU (occurrence: AU)
  Receive Date: 20251009
  Receipt Date: 20251009
  Transmission Date: 20260118
  Serious: Yes (Other)
  Sender: BAYER HEALTHCARE PHARMACEUTICALS INC.
  Company Number: AU-BAYER-2025A129081

PATIENT
  Age: 70 Year
  Sex: Male

DRUGS (7)
  1. NUBEQA [Suspect]
     Active Substance: DAROLUTAMIDE
     Dosage: 600 MG
     Route: 048
     Dates: start: 20250101, end: 2025
  2. Cartia [Concomitant]
  3. KEFLEX [Concomitant]
     Active Substance: CEPHALEXIN
  4. ATENOLOL [Concomitant]
     Active Substance: ATENOLOL
  5. KETOCONAZOLE [Concomitant]
     Active Substance: KETOCONAZOLE
  6. OLMESARTAN MEDOXOMIL [Concomitant]
     Active Substance: OLMESARTAN MEDOXOMIL
  7. GOSERELIN [Concomitant]
     Active Substance: GOSERELIN

REACTIONS (3)
  - Blood test abnormal [Unknown]
  - Cholestasis [Unknown]
  - Hepatocellular injury [Unknown]

NARRATIVE: CASE EVENT DATE: 20250804
